FAERS Safety Report 9166513 (Version 2)
Quarter: 2013Q2

REPORT INFORMATION
  Report Type: Spontaneous
  Country: FR (occurrence: FR)
  Receive Date: 20130315
  Receipt Date: 20130613
  Transmission Date: 20140414
  Serious: Yes (Life-Threatening, Hospitalization)
  Sender: FDA-Public Use
  Company Number: FR-ASTRAZENECA-2013SE15988

PATIENT
  Age: 26009 Day
  Sex: Male
  Weight: 80 kg

DRUGS (7)
  1. BRILIQUE [Suspect]
     Indication: ACUTE CORONARY SYNDROME
     Route: 048
     Dates: start: 20130227
  2. SECTRAL [Suspect]
     Indication: ACUTE CORONARY SYNDROME
     Route: 048
     Dates: start: 20130227
  3. MODOPAR [Suspect]
     Indication: PARKINSON^S DISEASE
     Route: 048
  4. LOSARTAN [Concomitant]
     Indication: HYPERTENSION
  5. ESOMEPRAZOLE [Concomitant]
     Indication: GASTRITIS PROPHYLAXIS
  6. KARDEGIC [Concomitant]
     Indication: ACUTE CORONARY SYNDROME
     Dates: start: 20130227
  7. SIMVASTATINE [Concomitant]
     Indication: HYPERCHOLESTEROLAEMIA
     Dates: start: 20130227

REACTIONS (1)
  - Atrioventricular block complete [Recovered/Resolved]
